APPROVED DRUG PRODUCT: PHYTONADIONE
Active Ingredient: PHYTONADIONE
Strength: 10MG/ML
Dosage Form/Route: INJECTABLE;INJECTION
Application: A214596 | Product #002
Applicant: CIPLA LTD
Approved: Apr 22, 2022 | RLD: No | RS: Yes | Type: RX